FAERS Safety Report 14085274 (Version 1)
Quarter: 2017Q4

REPORT INFORMATION
  Report Type: Report from Study
  Country: TW (occurrence: TW)
  Receive Date: 20171013
  Receipt Date: 20171013
  Transmission Date: 20180321
  Serious: Yes (Other)
  Sender: FDA-Public Use
  Company Number: TW-SUN PHARMACEUTICAL INDUSTRIES LTD-2017RR-152197

PATIENT

DRUGS (10)
  1. MYCOPHENOLATE MOFETIL. [Suspect]
     Active Substance: MYCOPHENOLATE MOFETIL
     Indication: IMMUNOSUPPRESSANT DRUG THERAPY
     Dosage: 2500 MG/DAY FROM POSTOPERATIVE DAY 1
     Route: 065
  2. SULPHAMETHOXAZOLE/TRIMETHOPRIM [Suspect]
     Active Substance: SULFAMETHOXAZOLE\TRIMETHOPRIM
     Indication: PROPHYLAXIS
     Dosage: (960 MG) UNTIL 6 MONTHS  POST-HTX
     Route: 048
  3. EVEROLIMUS. [Suspect]
     Active Substance: EVEROLIMUS
     Indication: IMMUNOSUPPRESSANT DRUG THERAPY
     Dosage: UNK
     Route: 065
  4. PREDNISOLONE. [Suspect]
     Active Substance: PREDNISOLONE
     Indication: IMMUNOSUPPRESSANT DRUG THERAPY
     Dosage: 60 MG/DAY INITIATED, TAPERED BY 5 MG/DAY UNTIL IT REACHED THE MAINTENANCE DOSE
     Route: 048
  5. TACROLIMUS. [Suspect]
     Active Substance: TACROLIMUS
     Indication: IMMUNOSUPPRESSANT DRUG THERAPY
     Dosage: 3MG/DAY;ADJUSTED UNTIL A SERUM LEVEL OF 10-15 NG/ML WAS REACHED IN THE FIRST MONTH
     Route: 065
  6. MYCOPHENOLATE MOFETIL. [Suspect]
     Active Substance: MYCOPHENOLATE MOFETIL
     Dosage: REDUCED BY 250 MG EVERY 3-6 MONTHS UNTIL IT REACHED 1250 MG/ DAY AFTER 2 YEARS
     Route: 065
  7. TACROLIMUS. [Suspect]
     Active Substance: TACROLIMUS
     Dosage: THEN 5-10 NG/ML IN THE FOLLOWING MONTHS
     Route: 065
  8. METHYLPREDNISOLONE. [Suspect]
     Active Substance: METHYLPREDNISOLONE
     Indication: IMMUNOSUPPRESSANT DRUG THERAPY
     Dosage: 500 MG, IV INTRAOPERATIVELY, FOLLOWED BY ANOTHER 3 DOSES (125 MG) EVERY 12 HOURS POSTOPERATIVELY
     Route: 042
  9. PREDNISOLONE. [Suspect]
     Active Substance: PREDNISOLONE
     Dosage: MAINTENANCE DOSE: 20 MG/DAY IN THE 1ST POST-HTX MONTH
     Route: 048
  10. VALGANCICLOVIR. [Concomitant]
     Active Substance: VALGANCICLOVIR
     Indication: IMMUNOSUPPRESSANT DRUG THERAPY
     Dosage: DAILY DOSE (450 MG) OF VALGANCICLOVIR FOR 3 MONTHS
     Route: 065

REACTIONS (3)
  - Lymphopenia [Unknown]
  - Drug ineffective [Unknown]
  - Pneumocystis jirovecii pneumonia [Unknown]
